FAERS Safety Report 9928362 (Version 1)
Quarter: 2014Q1

REPORT INFORMATION
  Report Type: Spontaneous
  Country: US (occurrence: None)
  Receive Date: 20140226
  Receipt Date: 20140226
  Transmission Date: 20141002
  Serious: Yes (Other)
  Sender: FDA-Public Use
  Company Number: None

PATIENT
  Age: 24 Year
  Sex: Female

DRUGS (1)
  1. DEXTROAMPHETAMINE-AMPHETAMINE XR [Suspect]
     Dosage: 1 CAPSULE QAM ORAL
     Route: 048
     Dates: start: 20140221, end: 20140222

REACTIONS (8)
  - Product substitution issue [None]
  - Depressed mood [None]
  - Fatigue [None]
  - Posture abnormal [None]
  - Bedridden [None]
  - Chest pain [None]
  - Myalgia [None]
  - Bone pain [None]
